FAERS Safety Report 9797103 (Version 1)
Quarter: 2014Q1

REPORT INFORMATION
  Report Type: Report from Study
  Country: US (occurrence: US)
  Receive Date: 20140106
  Receipt Date: 20140106
  Transmission Date: 20141002
  Serious: Yes (Other)
  Sender: FDA-Public Use
  Company Number: US-ROCHE-1328619

PATIENT
  Age: 84 Year
  Sex: 0

DRUGS (2)
  1. RITUXIMAB [Suspect]
     Indication: CHRONIC LYMPHOCYTIC LEUKAEMIA
     Route: 042
     Dates: start: 20110908, end: 20110928
  2. RITUXIMAB [Suspect]
     Route: 042
     Dates: start: 20111213, end: 20120101

REACTIONS (1)
  - Large intestinal stenosis [Unknown]
